FAERS Safety Report 4378866-3 (Version None)
Quarter: 2004Q2

REPORT INFORMATION
  Report Type: 
  Country: None (occurrence: None)
  Receive Date: 20040610
  Receipt Date: 20040528
  Transmission Date: 20050107
  Serious: Yes (Hospitalization)
  Sender: FDA-Public Use
  Company Number: DE-JNJFOC-20040502786

PATIENT
  Age: 6 Year
  Sex: Male
  Weight: 21 kg

DRUGS (2)
  1. RISPERDAL [Suspect]
     Indication: ABNORMAL BEHAVIOUR
     Dosage: 0.5 MG, IN 1 DAY, ORAL
     Route: 048
     Dates: start: 20040201, end: 20040301
  2. DIPIPERON (PIPAMPERONE) [Suspect]
     Indication: ABNORMAL BEHAVIOUR
     Route: 048
     Dates: start: 20020601, end: 20040201

REACTIONS (3)
  - DRUG INTERACTION [None]
  - GINGIVAL HYPERPLASIA [None]
  - TARDIVE DYSKINESIA [None]
